FAERS Safety Report 5014645-1 (Version None)
Quarter: 2006Q2

REPORT INFORMATION
  Report Type: 
  Country: None (occurrence: None)
  Receive Date: 20060531
  Receipt Date: 20060521
  Transmission Date: 20061013
  Serious: Yes (Hospitalization, Other)
  Sender: FDA-Public Use
  Company Number: JP-GILEAD-2006-0009619

PATIENT
  Age: 35 Year
  Sex: Male

DRUGS (5)
  1. EMTRIVA [Suspect]
     Indication: HIV INFECTION
     Route: 048
     Dates: start: 20060113, end: 20060324
  2. VIRAMUNE [Concomitant]
  3. RETROVIR [Concomitant]
     Indication: HIV INFECTION
  4. ALINAMIN-F [Concomitant]
  5. CYANOCOBALAMIN [Concomitant]

REACTIONS (5)
  - ACTIVATED PARTIAL THROMBOPLASTIN TIME PROLONGED [None]
  - ARTHRALGIA [None]
  - HAEMARTHROSIS [None]
  - HAEMATOSPERMIA [None]
  - HAEMATURIA [None]
